FAERS Safety Report 4961862-2 (Version None)
Quarter: 2006Q2

REPORT INFORMATION
  Report Type: 
  Country: None (occurrence: None)
  Receive Date: 20060404
  Receipt Date: 20060126
  Transmission Date: 20061013
  Serious: Yes (Hospitalization)
  Sender: FDA-Public Use
  Company Number: GB-AVENTIS-200610850GDDC

PATIENT
  Sex: Female

DRUGS (1)
  1. FLAGYL [Suspect]
     Route: 048

REACTIONS (1)
  - DEPRESSION [None]
